FAERS Safety Report 9228345 (Version 1)
Quarter: 2013Q2

REPORT INFORMATION
  Report Type: Spontaneous
  Country: US (occurrence: US)
  Receive Date: 20130412
  Receipt Date: 20130412
  Transmission Date: 20140414
  Serious: No
  Sender: FDA-Public Use
  Company Number: US-BAYER-2013-046171

PATIENT
  Age: 73 Year
  Sex: Male

DRUGS (6)
  1. LEVITRA [Suspect]
     Indication: ERECTILE DYSFUNCTION
     Dosage: 1/4 PILL, OW
     Route: 048
     Dates: start: 2003, end: 20130408
  2. ENALAPRIL MALEATE [Concomitant]
     Indication: BLOOD PRESSURE ABNORMAL
     Dosage: 10 MG, BID
  3. SIMVASTATIN [Concomitant]
     Dosage: 20 MG, QD
  4. VITAMIN E [Concomitant]
     Dosage: 1 DF, ONCE EVERY 3 DAYS
  5. FISH OIL [Concomitant]
     Dosage: 1 G, QD
  6. GLUCOSAMINE [Concomitant]
     Indication: CHONDROPLASTY
     Dosage: 1.5 G, QD

REACTIONS (4)
  - Ageusia [None]
  - Dysgeusia [None]
  - Drug ineffective [Not Recovered/Not Resolved]
  - Wrong technique in drug usage process [None]
